FAERS Safety Report 10065055 (Version 2)
Quarter: 2014Q2

REPORT INFORMATION
  Report Type: Spontaneous
  Country: US (occurrence: US)
  Receive Date: 20140408
  Receipt Date: 20140512
  Transmission Date: 20141212
  Serious: Yes (Other)
  Sender: FDA-Public Use
  Company Number: US-ALLERGAN-1406341US

PATIENT
  Age: 73 Year
  Sex: Female

DRUGS (8)
  1. RESTASIS [Suspect]
     Indication: DRY EYE
     Dosage: UNK UNK, BID
     Route: 047
     Dates: start: 2009
  2. REFRESH TEARS [Concomitant]
     Indication: DRY EYE
  3. MAGNESIUM [Concomitant]
     Dosage: UNK
  4. POTASSIUM [Concomitant]
     Indication: PRODUCT USED FOR UNKNOWN INDICATION
     Dosage: UNK
  5. CARVEDILOL [Concomitant]
     Indication: CARDIAC DISORDER
     Dosage: UNK
  6. ISOSORBIDE [Concomitant]
     Indication: CARDIAC DISORDER
     Dosage: UNK
  7. LISINOPRIL [Concomitant]
     Dosage: UNK
  8. TRAZODONE [Concomitant]
     Indication: SLEEP DISORDER
     Dosage: UNK UNK, QHS
     Route: 048

REACTIONS (5)
  - B-cell lymphoma [Unknown]
  - Dry eye [Unknown]
  - Eye irritation [Unknown]
  - Eye irritation [Unknown]
  - Ocular hyperaemia [Unknown]
